FAERS Safety Report 25159568 (Version 1)
Quarter: 2025Q2

REPORT INFORMATION
  Report Type: Spontaneous
  Country: RS (occurrence: RS)
  Receive Date: 20250404
  Receipt Date: 20250404
  Transmission Date: 20250717
  Serious: Yes (Other)
  Sender: ROCHE
  Company Number: RS-ROCHE-10000243658

PATIENT
  Age: 67 Year
  Sex: Female

DRUGS (8)
  1. TOCILIZUMAB [Suspect]
     Active Substance: TOCILIZUMAB
     Indication: Product used for unknown indication
     Dosage: STRENGTH: 162MG/0.9ML
     Route: 058
     Dates: start: 202404
  2. PRONISON [Concomitant]
     Active Substance: PREDNISONE
  3. PLAQUENIL [Concomitant]
     Active Substance: HYDROXYCHLOROQUINE SULFATE
  4. ARAVA [Concomitant]
     Active Substance: LEFLUNOMIDE
  5. NIFEDIPINE [Concomitant]
     Active Substance: NIFEDIPINE
  6. METHOTREXATE [Concomitant]
     Active Substance: METHOTREXATE
  7. FOLIC ACID [Concomitant]
     Active Substance: FOLIC ACID
  8. GOLD [Concomitant]
     Active Substance: GOLD

REACTIONS (4)
  - Contusion [Unknown]
  - Respiratory tract infection [Unknown]
  - Body temperature increased [Unknown]
  - Thrombocytopenia [Unknown]

NARRATIVE: CASE EVENT DATE: 20240701
